FAERS Safety Report 12203076 (Version 3)
Quarter: 2016Q2

REPORT INFORMATION
  Report Type: Spontaneous
  Country: IT (occurrence: IT)
  Receive Date: 20160323
  Receipt Date: 20160402
  Transmission Date: 20160815
  Serious: Yes (Other)
  Sender: FDA-Public Use
  Company Number: IT-ACCORD-038753

PATIENT
  Age: 68 Year
  Sex: Female
  Weight: 61 kg

DRUGS (4)
  1. ATENOLOL/ATENOLOL HYDROCHLORIDE [Concomitant]
  2. PANTORC [Concomitant]
     Active Substance: PANTOPRAZOLE SODIUM
  3. HERCEPTIN [Suspect]
     Active Substance: TRASTUZUMAB
     Indication: INVASIVE DUCTAL BREAST CARCINOMA
     Dosage: RECEIVED UPTO 19-JAN-2016
     Route: 042
     Dates: start: 20151103
  4. PACLITAXEL/PACLITAXEL LIPOSOME [Suspect]
     Active Substance: PACLITAXEL
     Indication: INVASIVE DUCTAL BREAST CARCINOMA
     Dosage: RECEIVED UPTO 19-JAN-2016
     Route: 042
     Dates: start: 20151103

REACTIONS (8)
  - Myalgia [Recovering/Resolving]
  - Hypertransaminasaemia [Recovering/Resolving]
  - Rash [Not Recovered/Not Resolved]
  - Cardiotoxicity [Recovering/Resolving]
  - Hyperbilirubinaemia [Recovering/Resolving]
  - Abdominal pain [Unknown]
  - Dyspnoea exertional [Not Recovered/Not Resolved]
  - Astringent therapy [Recovering/Resolving]

NARRATIVE: CASE EVENT DATE: 20151110
